FAERS Safety Report 8837321 (Version 1)
Quarter: 2012Q4

REPORT INFORMATION
  Report Type: 
  Country: US (occurrence: US)
  Receive Date: 20121011
  Receipt Date: 20121011
  Transmission Date: 20130627
  Serious: Yes (Other)
  Sender: FDA-Public Use
  Company Number: US-ROCHE-1141825

PATIENT
  Age: 7 Year
  Sex: Male
  Weight: 17.5 kg

DRUGS (7)
  1. NUTROPIN AQ [Suspect]
     Indication: RENAL FAILURE CHRONIC
     Route: 065
  2. NUTROPIN AQ [Suspect]
     Indication: OBSTRUCTIVE UROPATHY
  3. SODIUM BICARBONATE [Concomitant]
     Route: 065
  4. DITROPAN [Concomitant]
     Route: 065
  5. FERROUS SULPHATE [Concomitant]
     Route: 065
  6. BICITRA [Concomitant]
     Route: 065
  7. DIHYDROTACHYSTEROL [Concomitant]
     Route: 065

REACTIONS (2)
  - Infectious mononucleosis [Unknown]
  - Urinary tract infection [Unknown]
